FAERS Safety Report 6440597-3 (Version None)
Quarter: 2009Q4

REPORT INFORMATION
  Report Type: 
  Country: None (occurrence: None)
  Receive Date: 20091113
  Receipt Date: 20091105
  Transmission Date: 20100525
  Serious: Yes (Hospitalization)
  Sender: FDA-Public Use
  Company Number: JP-MERCK-0911USA01963

PATIENT
  Age: 70 Year
  Sex: Female

DRUGS (4)
  1. PEPCID RPD [Suspect]
     Route: 048
  2. CEFAMEZIN [Suspect]
     Route: 042
  3. ALEVIATIN [Suspect]
     Route: 065
  4. IOMERON-150 [Suspect]
     Route: 065

REACTIONS (1)
  - STEVENS-JOHNSON SYNDROME [None]
